FAERS Safety Report 5618434-6 (Version None)
Quarter: 2008Q1

REPORT INFORMATION
  Report Type: 
  Country: None (occurrence: None)
  Receive Date: 20080207
  Receipt Date: 20080124
  Transmission Date: 20080703
  Serious: Yes (Other)
  Sender: FDA-Public Use
  Company Number: GB-AMGEN-US262868

PATIENT
  Sex: Female

DRUGS (4)
  1. ENBREL [Suspect]
     Indication: JUVENILE ARTHRITIS
     Route: 065
     Dates: start: 20041115
  2. METHOTREXATE [Concomitant]
     Route: 065
  3. IBUPROFEN [Concomitant]
     Dosage: 300MG 3 TIMES DAILY, AND AS NEEDED
     Route: 065
     Dates: start: 20020401
  4. CORTICOSTEROID NOS [Concomitant]
     Dosage: UNKNOWN DOSE, TWICE DAILY
     Route: 065
     Dates: start: 20080101

REACTIONS (2)
  - CONDITION AGGRAVATED [None]
  - ECZEMA [None]
